FAERS Safety Report 23383975 (Version 1)
Quarter: 2024Q1

REPORT INFORMATION
  Report Type: Spontaneous
  Country: US (occurrence: US)
  Receive Date: 20240109
  Receipt Date: 20240109
  Transmission Date: 20240410
  Serious: No
  Sender: FDA-Public Use
  Company Number: US-BRISTOL-MYERS SQUIBB COMPANY-2024-004329

PATIENT
  Age: 72 Year
  Sex: Male

DRUGS (1)
  1. POMALYST [Suspect]
     Active Substance: POMALIDOMIDE
     Indication: Plasma cell myeloma
     Route: 048
     Dates: start: 202301

REACTIONS (5)
  - Respiratory tract congestion [Recovering/Resolving]
  - Fatigue [Recovering/Resolving]
  - Oral pain [Recovering/Resolving]
  - Rash [Recovered/Resolved]
  - Vision blurred [Recovering/Resolving]
